FAERS Safety Report 9293656 (Version 1)
Quarter: 2013Q2

REPORT INFORMATION
  Report Type: Spontaneous
  Country: US (occurrence: US)
  Receive Date: 20130516
  Receipt Date: 20130516
  Transmission Date: 20140414
  Serious: Yes (Other)
  Sender: FDA-Public Use
  Company Number: PHEH2013US010664

PATIENT
  Sex: Male

DRUGS (8)
  1. EXFORGE HCT [Suspect]
     Dosage: 160/5/25 MG, UNK
  2. TRIBENZOR [Suspect]
     Dosage: UNK UKN, UNK
  3. TOPROL [Concomitant]
     Dosage: UNK UKN, UNK
  4. VITAMIN B12 [Concomitant]
     Dosage: UNK UKN, UNK
  5. VITAMIN B 6 [Concomitant]
     Dosage: UNK UKN, UNK
  6. FOLIC ACID [Concomitant]
  7. COUMADINE [Concomitant]
     Dosage: UNK UKN, EVERYDAY
  8. WARFARIN [Concomitant]
     Dosage: UNK UKN, EVERYDAY

REACTIONS (1)
  - Renal cancer [Unknown]
